FAERS Safety Report 6193923-7 (Version None)
Quarter: 2009Q2

REPORT INFORMATION
  Report Type: 
  Country: None (occurrence: None)
  Receive Date: 20090518
  Receipt Date: 20090506
  Transmission Date: 20091009
  Serious: Yes (Disabling)
  Sender: FDA-Public Use
  Company Number: AT-PFIZER INC-2009210543

PATIENT
  Age: 72 Year

DRUGS (5)
  1. SOMATROPIN [Suspect]
     Indication: HYPOPITUITARISM
     Dosage: 0.1 MG, 1X/DAY
     Route: 058
     Dates: start: 19960515, end: 20090403
  2. SORTIS [Concomitant]
     Dosage: 10 MG, 1X/DAY
     Route: 048
  3. NORVASC [Concomitant]
     Dosage: 10 MG, 2X/DAY
     Route: 048
  4. ASPIRIN [Concomitant]
     Dosage: 100 MG, 1X/DAY
     Route: 048
  5. VOLTAREN [Concomitant]
     Dosage: 50 MG, 1X/DAY
     Route: 048

REACTIONS (1)
  - MACULAR DEGENERATION [None]
